FAERS Safety Report 8580016-4 (Version None)
Quarter: 2012Q2

REPORT INFORMATION
  Report Type: 
  Country: None (occurrence: None)
  Receive Date: 20120423
  Receipt Date: 20100809
  Transmission Date: 20120825
  Serious: Yes (Hospitalization)
  Sender: FDA-Public Use
  Company Number: PHHY2010US52842

PATIENT
  Age: 44 Year
  Sex: Female

DRUGS (4)
  1. EXJADE [Suspect]
     Indication: TRANSFUSION RELATED COMPLICATION
     Dosage: 250 MG, TID, ORAL
     Route: 048
     Dates: start: 20100101
  2. LISINOPRIL [Concomitant]
  3. LORTAB [Concomitant]
  4. ALLOPURINOL [Concomitant]

REACTIONS (2)
  - HAEMATOCRIT DECREASED [None]
  - HAEMOGLOBIN DECREASED [None]
